FAERS Safety Report 5331817-7 (Version None)
Quarter: 2007Q2

REPORT INFORMATION
  Report Type: 
  Country: None (occurrence: None)
  Receive Date: 20070518
  Receipt Date: 20070425
  Transmission Date: 20071010
  Serious: Yes (Hospitalization)
  Sender: FDA-Public Use
  Company Number: FR-GUERBET-20070100

PATIENT
  Age: 48 Year
  Sex: Female

DRUGS (1)
  1. DOTAREM: / MEGLUMINE GADOTERATE [Suspect]
     Indication: NUCLEAR MAGNETIC RESONANCE IMAGING
     Dosage: 15, ML MILLILITRE(S) INTRAVENOUS
     Route: 042
     Dates: start: 20070216, end: 20070216

REACTIONS (4)
  - CALCIPHYLAXIS [None]
  - ECZEMA [None]
  - NEPHROGENIC FIBROSING DERMOPATHY [None]
  - PRURIGO [None]
